FAERS Safety Report 9807802 (Version 2)
Quarter: 2014Q1

REPORT INFORMATION
  Report Type: Spontaneous
  Country: BR (occurrence: BR)
  Receive Date: 20140110
  Receipt Date: 20140116
  Transmission Date: 20141002
  Serious: Yes (Hospitalization)
  Sender: FDA-Public Use
  Company Number: BR-ELI_LILLY_AND_COMPANY-BR201401000932

PATIENT
  Age: 67 Year
  Sex: Female
  Weight: 70 kg

DRUGS (6)
  1. HUMALOG MIX 25 [Suspect]
     Indication: DIABETES MELLITUS
     Dosage: UNK, UNKNOWN
     Route: 058
  2. LANTUS [Concomitant]
     Indication: DIABETES MELLITUS
     Dosage: 16 IU, QD
     Route: 065
     Dates: start: 2011
  3. LIPITOR [Concomitant]
     Indication: BLOOD PRESSURE INCREASED
     Dosage: 10 MG, QD
  4. LIPITOR [Concomitant]
     Indication: BLOOD CHOLESTEROL
  5. APROVEL [Concomitant]
     Indication: CALCIUM DEFICIENCY
     Dosage: 75 MG, UNK
     Route: 065
  6. CEBRILIN [Concomitant]
     Indication: DEPRESSION
     Dosage: 1 DF, QD
     Route: 065

REACTIONS (5)
  - Acidosis [Recovered/Resolved]
  - Drug dose omission [Recovered/Resolved]
  - Blood calcium decreased [Unknown]
  - Blood iron decreased [Unknown]
  - Blood glucose increased [Unknown]
